FAERS Safety Report 10571321 (Version 2)
Quarter: 2014Q4

REPORT INFORMATION
  Report Type: Spontaneous
  Country: US (occurrence: US)
  Receive Date: 20141107
  Receipt Date: 20141107
  Transmission Date: 20150529
  Serious: Yes (Death, Other)
  Sender: FDA-Public Use
  Company Number: US-GLAXOSMITHKLINE-A0782844A

PATIENT
  Sex: Female

DRUGS (5)
  1. AVANDIA [Suspect]
     Active Substance: ROSIGLITAZONE MALEATE
     Indication: DIABETES MELLITUS
     Dosage: 8 MG, QD
     Route: 048
     Dates: start: 200205, end: 20061123
  2. NORVASC [Concomitant]
     Active Substance: AMLODIPINE BESYLATE
  3. LOPID [Concomitant]
     Active Substance: GEMFIBROZIL
  4. PRINIVIL [Concomitant]
     Active Substance: LISINOPRIL
  5. GLUCOTROL [Concomitant]
     Active Substance: GLIPIZIDE

REACTIONS (1)
  - Myocardial infarction [Fatal]
